FAERS Safety Report 8472150-4 (Version None)
Quarter: 2012Q2

REPORT INFORMATION
  Report Type: 
  Country: None (occurrence: None)
  Receive Date: 20120627
  Receipt Date: 20120622
  Transmission Date: 20120825
  Serious: Yes (Other)
  Sender: FDA-Public Use
  Company Number: US-MERCK-1206USA04053

PATIENT
  Age: 64 Year
  Sex: Female
  Weight: 49 kg

DRUGS (3)
  1. CENTRUM SILVER ULTRA WOMENS [Suspect]
     Route: 048
  2. TENORMIN [Concomitant]
     Indication: HYPERTENSION
     Route: 048
  3. VYTORIN [Suspect]
     Route: 048
     Dates: end: 20120101

REACTIONS (3)
  - CHOKING [None]
  - THROAT IRRITATION [None]
  - BLOOD CHOLESTEROL INCREASED [None]
